FAERS Safety Report 21626613 (Version 3)
Quarter: 2023Q1

REPORT INFORMATION
  Report Type: Report from Study
  Country: US (occurrence: US)
  Receive Date: 20221122
  Receipt Date: 20230217
  Transmission Date: 20230417
  Serious: No
  Sender: FDA-Public Use
  Company Number: US-ABBVIE-22K-163-4456096-00

PATIENT
  Age: 56 Year
  Sex: Male
  Weight: 111 kg

DRUGS (44)
  1. RINVOQ [Suspect]
     Active Substance: UPADACITINIB
     Indication: Rheumatoid arthritis
     Dosage: ER
     Route: 048
     Dates: start: 20210921
  2. RINVOQ [Suspect]
     Active Substance: UPADACITINIB
     Indication: Rheumatoid arthritis
     Route: 048
  3. RINVOQ [Suspect]
     Active Substance: UPADACITINIB
     Indication: Rheumatoid arthritis
     Route: 048
  4. PLAQUENIL [Concomitant]
     Active Substance: HYDROXYCHLOROQUINE SULFATE
     Indication: Product used for unknown indication
     Route: 048
  5. FOLIC ACID [Concomitant]
     Active Substance: FOLIC ACID
     Indication: Mouth ulceration
     Route: 048
  6. LUTEIN [Concomitant]
     Active Substance: LUTEIN
     Indication: Supplementation therapy
     Dosage: DAILY
     Route: 048
  7. ALIGN [Concomitant]
     Active Substance: BIFIDOBACTERIUM LONGUM SUBSP. INFANTIS
     Indication: Supplementation therapy
  8. ZEAXANTHIN [Concomitant]
     Active Substance: ZEAXANTHIN
     Indication: Supplementation therapy
     Dosage: DAILY
     Route: 048
  9. MOTILIUM [Concomitant]
     Active Substance: DOMPERIDONE
     Indication: Impaired gastric emptying
     Dosage: AS NEEDED
  10. SELENIUM [Concomitant]
     Active Substance: SELENIUM
     Indication: Supplementation therapy
     Dosage: DAILY
     Route: 048
  11. VITAMIN C [Concomitant]
     Active Substance: ASCORBIC ACID
     Indication: Vitamin supplementation
     Dosage: DAILY
     Route: 048
  12. VITAMIN D3 [Concomitant]
     Active Substance: CHOLECALCIFEROL
     Indication: Vitamin supplementation
     Dosage: 125 MCG, DAILY
     Route: 048
  13. SINGULAIR [Concomitant]
     Active Substance: MONTELUKAST SODIUM
     Indication: Product used for unknown indication
     Dosage: DAILY
  14. SODIUM SULFACETAMIDE 10 SULFUR 5 [Concomitant]
     Active Substance: SULFACETAMIDE SODIUM\SULFUR
     Indication: Product used for unknown indication
     Dosage: APPLY TO FACE DAILY - ROSACEAE
  15. PHAZYME [Concomitant]
     Active Substance: DIMETHICONE 410
     Indication: Supplementation therapy
     Dosage: AS NEEDED
  16. PEPCID [Concomitant]
     Active Substance: FAMOTIDINE
     Indication: Product used for unknown indication
     Route: 048
  17. HERBALS\TURMERIC [Concomitant]
     Active Substance: HERBALS\TURMERIC
     Indication: Supplementation therapy
     Dosage: TIME INTERVAL: 0.33333333 DAYS
     Route: 048
  18. ZINC SULFATE [Concomitant]
     Active Substance: ZINC SULFATE
     Indication: Mineral supplementation
     Dosage: DAILY
     Route: 048
  19. Osteo bi-flex joint health triple strength [Concomitant]
     Indication: Supplementation therapy
     Dosage: WITH MSM
     Route: 048
  20. MINERALS\VITAMINS [Concomitant]
     Active Substance: MINERALS\VITAMINS
     Indication: Supplementation therapy
  21. FLONASE [Concomitant]
     Active Substance: FLUTICASONE PROPIONATE
     Indication: Product used for unknown indication
     Dosage: 2 SPRAYS EACH NOSTRIL ONCE DAILY
  22. METRONIDAZOLE [Concomitant]
     Active Substance: METRONIDAZOLE
     Indication: Product used for unknown indication
     Dosage: TO FACE DAILY - ROSACEAE
  23. NEXIUM [Concomitant]
     Active Substance: ESOMEPRAZOLE MAGNESIUM
     Indication: Product used for unknown indication
  24. MAGNESIUM [Concomitant]
     Active Substance: MAGNESIUM
     Indication: Mineral supplementation
     Dosage: DAILY
  25. AMITRIPTYLINE [Concomitant]
     Active Substance: AMITRIPTYLINE
     Indication: Autonomic nervous system imbalance
     Dosage: NIGHTLY
     Route: 048
  26. CRESTOR [Concomitant]
     Active Substance: ROSUVASTATIN CALCIUM
     Indication: Product used for unknown indication
     Dosage: NIGHTLY
     Route: 048
  27. SYMBICORT [Concomitant]
     Active Substance: BUDESONIDE\FORMOTEROL FUMARATE DIHYDRATE
     Indication: Product used for unknown indication
  28. SALT [Concomitant]
     Active Substance: SODIUM CHLORIDE
     Indication: Hyperhidrosis
     Dosage: ONLY WHEN WORKING OUTSIDE
  29. CYMBALTA [Concomitant]
     Active Substance: DULOXETINE HYDROCHLORIDE
     Indication: Arthralgia
     Route: 048
  30. VITAMIN E [Concomitant]
     Active Substance: .ALPHA.-TOCOPHEROL
     Indication: Vitamin supplementation
     Dosage: 670 MCG
  31. IBUPROFEN [Concomitant]
     Active Substance: IBUPROFEN
     Indication: Product used for unknown indication
     Route: 048
  32. GAVISCON [Concomitant]
     Active Substance: ALUMINUM HYDROXIDE\MAGNESIUM CARBONATE
     Indication: Supplementation therapy
     Dosage: AS NEEDED
  33. BEANO [Concomitant]
     Active Substance: ASPERGILLUS NIGER .ALPHA.-GALACTOSIDASE
     Indication: Supplementation therapy
     Dosage: AS NEEDED
  34. DICLOFENAC [Concomitant]
     Active Substance: DICLOFENAC
     Indication: Product used for unknown indication
     Dosage: APPLY AS NEEDED TO JOINTS + HANDS
  35. TYLENOL [Concomitant]
     Active Substance: ACETAMINOPHEN
     Indication: Pain
  36. BACTROBAN [Concomitant]
     Active Substance: MUPIROCIN\MUPIROCIN CALCIUM
     Indication: Back pain
     Dosage: TIME INTERVAL: 0.33333333 DAYS
     Dates: start: 20220711
  37. Posture D [Concomitant]
     Indication: Supplementation therapy
  38. L Lysine [Concomitant]
     Indication: Stomatitis
  39. ROBAXIN [Concomitant]
     Active Substance: METHOCARBAMOL
     Indication: Product used for unknown indication
     Dosage: ACTUALLY TAKE 1 TIME AT BEDTIME ONLY
     Route: 048
  40. FLORINEF ACETATE [Concomitant]
     Active Substance: FLUDROCORTISONE ACETATE
     Indication: Autonomic nervous system imbalance
  41. BENICAR [Concomitant]
     Active Substance: OLMESARTAN MEDOXOMIL
     Indication: Product used for unknown indication
     Dosage: NIGHTLY
     Route: 048
     Dates: start: 20220830
  42. REGLAN [Concomitant]
     Active Substance: METOCLOPRAMIDE HYDROCHLORIDE
     Indication: Impaired gastric emptying
     Dosage: AS NEEDED
  43. ALBUTEROL [Concomitant]
     Active Substance: ALBUTEROL
     Indication: Product used for unknown indication
  44. CALCIUM CITRATE [Concomitant]
     Active Substance: CALCIUM CITRATE
     Indication: Supplementation therapy

REACTIONS (19)
  - Skin ulcer [Recovering/Resolving]
  - Arthralgia [Recovered/Resolved]
  - Peripheral swelling [Recovering/Resolving]
  - Exposure to toxic agent [Not Recovered/Not Resolved]
  - Cough [Recovered/Resolved]
  - Fatigue [Unknown]
  - Pain [Recovering/Resolving]
  - Lung disorder [Not Recovered/Not Resolved]
  - Upper-airway cough syndrome [Recovered/Resolved]
  - Arthralgia [Recovered/Resolved]
  - Arthralgia [Recovering/Resolving]
  - Dizziness [Not Recovered/Not Resolved]
  - Wheezing [Unknown]
  - Blood pressure abnormal [Unknown]
  - Respiratory tract irritation [Not Recovered/Not Resolved]
  - Haemoptysis [Not Recovered/Not Resolved]
  - Urinary tract disorder [Not Recovered/Not Resolved]
  - Arthralgia [Not Recovered/Not Resolved]
  - Gastrointestinal disorder [Not Recovered/Not Resolved]

NARRATIVE: CASE EVENT DATE: 20220101
